FAERS Safety Report 6814430-1 (Version None)
Quarter: 2010Q3

REPORT INFORMATION
  Report Type: 
  Country: None (occurrence: None)
  Receive Date: 20100702
  Receipt Date: 20100618
  Transmission Date: 20110219
  Serious: Yes (Other)
  Sender: FDA-Public Use
  Company Number: PHHY2010US31018

PATIENT
  Sex: Male
  Weight: 112 kg

DRUGS (7)
  1. EXJADE [Suspect]
     Indication: APLASTIC ANAEMIA
     Dosage: 2000 MG DAILY (QPM)
     Route: 048
     Dates: start: 20100416
  2. PREDNISONE [Concomitant]
  3. FLOMAX [Concomitant]
  4. SENNOSIDES-DOCUSATE [Concomitant]
  5. LISINOPRIL [Concomitant]
  6. PROMETHAZINE [Concomitant]
  7. ZOFRAN [Concomitant]
     Dosage: 8 MG/DAY (QAM)

REACTIONS (5)
  - DIARRHOEA [None]
  - FUNGAL SKIN INFECTION [None]
  - NAUSEA [None]
  - RASH [None]
  - RENAL DISORDER [None]
